FAERS Safety Report 12659088 (Version 1)
Quarter: 2016Q3

REPORT INFORMATION
  Report Type: Spontaneous
  Country: US (occurrence: US)
  Receive Date: 20160817
  Receipt Date: 20160817
  Transmission Date: 20161109
  Serious: Yes (Hospitalization, Other)
  Sender: FDA-Public Use
  Company Number: US-AMGEN-USASP2016104594

PATIENT
  Age: 60 Year
  Sex: Male

DRUGS (1)
  1. ENBREL [Suspect]
     Active Substance: ETANERCEPT
     Indication: RHEUMATOID ARTHRITIS
     Dosage: UNK
     Route: 065

REACTIONS (14)
  - Cardiomegaly [Unknown]
  - Blood pressure increased [Unknown]
  - Condition aggravated [Unknown]
  - Infection [Unknown]
  - Atrial fibrillation [Unknown]
  - Glucose tolerance impaired [Unknown]
  - Cardiac failure [Unknown]
  - Pain in extremity [Unknown]
  - Swelling [Unknown]
  - Lung infection [Unknown]
  - Pleural effusion [Unknown]
  - Pneumonia [Unknown]
  - Dyspnoea [Not Recovered/Not Resolved]
  - Catheterisation cardiac [Unknown]

NARRATIVE: CASE EVENT DATE: 2014
